FAERS Safety Report 6126621-6 (Version None)
Quarter: 2009Q1

REPORT INFORMATION
  Report Type: 
  Country: None (occurrence: None)
  Receive Date: 20090320
  Receipt Date: 20090311
  Transmission Date: 20090719
  Serious: Yes (Other)
  Sender: FDA-Public Use
  Company Number: PL-ABBOTT-09P-129-0561760-00

PATIENT
  Age: 61 Year
  Sex: Female

DRUGS (2)
  1. VALPROATE SODIUM [Suspect]
     Indication: MENTAL DISORDER
     Dosage: UNKNOWN
  2. CLOMIPRAMINE [Suspect]
     Indication: MENTAL DISORDER
     Route: 065

REACTIONS (1)
  - PSEUDOPORPHYRIA [None]
